FAERS Safety Report 7842489-1 (Version None)
Quarter: 2011Q4

REPORT INFORMATION
  Report Type: 
  Country: None (occurrence: None)
  Receive Date: 20111025
  Receipt Date: 20111011
  Transmission Date: 20120403
  Serious: Yes (Death, Other)
  Sender: FDA-Public Use
  Company Number: PHHY2011DE92345

PATIENT
  Age: 32 Year
  Sex: Male

DRUGS (2)
  1. MYCOPHENOLATE MOFETIL [Concomitant]
     Dosage: 1 G, UNK
  2. CYCLOSPORINE [Suspect]
     Indication: STEM CELL TRANSPLANT
     Dosage: 125 MG, DAILY

REACTIONS (8)
  - ASPERGILLOSIS [None]
  - SYSTEMIC MYCOSIS [None]
  - VISUAL ACUITY REDUCED [None]
  - VISION BLURRED [None]
  - PULMONARY MYCOSIS [None]
  - PNEUMONIA [None]
  - EYE INFECTION FUNGAL [None]
  - RETINAL DISORDER [None]
